FAERS Safety Report 6184613-5 (Version None)
Quarter: 2009Q2

REPORT INFORMATION
  Report Type: 
  Country: None (occurrence: None)
  Receive Date: 20090508
  Receipt Date: 20090506
  Transmission Date: 20091009
  Serious: Yes (Death)
  Sender: FDA-Public Use
  Company Number: PHHY2009TR17175

PATIENT
  Age: 47 Year
  Sex: Female

DRUGS (1)
  1. VOLTAREN [Suspect]
     Indication: OSTEOARTHRITIS

REACTIONS (1)
  - HAEMOLYTIC URAEMIC SYNDROME [None]
